FAERS Safety Report 14576208 (Version 1)
Quarter: 2018Q1

REPORT INFORMATION
  Report Type: Spontaneous
  Country: ES (occurrence: ES)
  Receive Date: 20180227
  Receipt Date: 20180227
  Transmission Date: 20180509
  Serious: Yes (Life-Threatening)
  Sender: FDA-Public Use
  Company Number: ES-CIPLA LTD.-2018ES06336

PATIENT

DRUGS (1)
  1. CARBOPLATIN. [Suspect]
     Active Substance: CARBOPLATIN
     Indication: OVARIAN CANCER
     Dosage: UNK, CARBOPLATINO AUC 5 CADA 28 D, 2 TANDA DE CARBO ()
     Route: 042
     Dates: start: 20170212, end: 20170508

REACTIONS (6)
  - Hyperhidrosis [Recovered/Resolved]
  - Feeling of relaxation [Recovered/Resolved]
  - Loss of consciousness [Recovered/Resolved]
  - Respiration abnormal [Recovered/Resolved]
  - Erythema [Recovered/Resolved]
  - Hypersensitivity [Recovered/Resolved]

NARRATIVE: CASE EVENT DATE: 20170508
